FAERS Safety Report 24994974 (Version 1)
Quarter: 2025Q1

REPORT INFORMATION
  Report Type: Spontaneous
  Country: IN (occurrence: IN)
  Receive Date: 20250221
  Receipt Date: 20250221
  Transmission Date: 20250409
  Serious: Yes (Death, Hospitalization)
  Sender: MYLAN
  Company Number: IN-MYLANLABS-2025M1015103

PATIENT
  Age: 3 Decade
  Sex: Female

DRUGS (4)
  1. PANTOPRAZOLE [Suspect]
     Active Substance: PANTOPRAZOLE
     Indication: Gastrointestinal disorder
     Route: 042
  2. CHARCOAL ACTIVATED [Suspect]
     Active Substance: ACTIVATED CHARCOAL
     Indication: Poisoning
     Route: 065
  3. PENICILLAMINE [Suspect]
     Active Substance: PENICILLAMINE
     Indication: Poisoning
     Dosage: 500 MILLIGRAM, Q6H
     Route: 048
  4. METHYLENE BLUE [Suspect]
     Active Substance: METHYLENE BLUE
     Indication: Poisoning
     Route: 042

REACTIONS (1)
  - Drug ineffective [Fatal]
